FAERS Safety Report 10756222 (Version 8)
Quarter: 2016Q1

REPORT INFORMATION
  Report Type: Spontaneous
  Country: US (occurrence: US)
  Receive Date: 20150202
  Receipt Date: 20160120
  Transmission Date: 20160525
  Serious: No
  Sender: FDA-Public Use
  Company Number: US-PFIZER INC-2015043282

PATIENT
  Age: 74 Year
  Sex: Male
  Weight: 122 kg

DRUGS (2)
  1. NEURONTIN [Suspect]
     Active Substance: GABAPENTIN
     Indication: DIABETIC FOOT
     Dosage: UNK, 1X/DAY
     Dates: start: 2005
  2. INSULIN [Concomitant]
     Active Substance: INSULIN NOS
     Indication: DIABETES MELLITUS
     Dosage: UNK

REACTIONS (6)
  - Drug ineffective for unapproved indication [Unknown]
  - Pain [Unknown]
  - Condition aggravated [Unknown]
  - Nausea [Recovered/Resolved]
  - Insomnia [Unknown]
  - Headache [Recovered/Resolved]
